FAERS Safety Report 8820368 (Version 2)
Quarter: 2012Q4

REPORT INFORMATION
  Report Type: 
  Country: GB (occurrence: GB)
  Receive Date: 20121002
  Receipt Date: 20121025
  Transmission Date: 20130627
  Serious: Yes (Congenital Anomaly)
  Sender: FDA-Public Use
  Company Number: GB-AMGEN-GBRSP2012061708

PATIENT
  Age: 6 Month

DRUGS (2)
  1. ENBREL [Suspect]
     Dosage: 50 mg, qwk
     Route: 064
     Dates: start: 20100617, end: 201106
  2. ARCOXIA [Concomitant]
     Dosage: UNK
     Route: 064

REACTIONS (2)
  - Maternal exposure timing unspecified [Unknown]
  - Fallot^s tetralogy [Unknown]
